FAERS Safety Report 25645311 (Version 1)
Quarter: 2025Q3

REPORT INFORMATION
  Report Type: Spontaneous
  Country: US (occurrence: None)
  Receive Date: 20250805
  Receipt Date: 20250805
  Transmission Date: 20251021
  Serious: Yes (Hospitalization)
  Sender: FDA-CTU
  Company Number: None

PATIENT
  Age: 74 Year
  Sex: Male
  Weight: 69.3 kg

DRUGS (2)
  1. IPILIMUMAB [Suspect]
     Active Substance: IPILIMUMAB
  2. NIVOLUMAB [Suspect]
     Active Substance: NIVOLUMAB

REACTIONS (14)
  - Peritoneal dialysis [None]
  - Asthenia [None]
  - Muscular weakness [None]
  - Fatigue [None]
  - Hypophagia [None]
  - Abnormal loss of weight [None]
  - Nausea [None]
  - Hypotension [None]
  - Dysstasia [None]
  - Sepsis [None]
  - Leukocytosis [None]
  - Lactic acidosis [None]
  - Full blood count abnormal [None]
  - Hypokalaemia [None]

NARRATIVE: CASE EVENT DATE: 20250717
